FAERS Safety Report 10628323 (Version 1)
Quarter: 2014Q4

REPORT INFORMATION
  Report Type: Spontaneous
  Country: US (occurrence: US)
  Receive Date: 20141205
  Receipt Date: 20141205
  Transmission Date: 20150529
  Serious: No
  Sender: FDA-Public Use
  Company Number: US-BRISTOL-MYERS SQUIBB COMPANY-20228375

PATIENT
  Age: 79 Year
  Sex: Male
  Weight: 85.26 kg

DRUGS (4)
  1. VINCRISTINE [Suspect]
     Active Substance: VINCRISTINE
  2. PREDNISONE. [Concomitant]
     Active Substance: PREDNISONE
  3. ETOPOPHOS [Suspect]
     Active Substance: ETOPOSIDE PHOSPHATE
     Dosage: PUMP
     Route: 042
  4. DOXORUBICIN [Suspect]
     Active Substance: DOXORUBICIN
     Route: 042

REACTIONS (3)
  - Product quality issue [Unknown]
  - Insomnia [Unknown]
  - Weight fluctuation [Unknown]
